FAERS Safety Report 7392750-2 (Version None)
Quarter: 2011Q2

REPORT INFORMATION
  Report Type: 
  Country: None (occurrence: None)
  Receive Date: 20110404
  Receipt Date: 20110324
  Transmission Date: 20111010
  Serious: Yes (Hospitalization)
  Sender: FDA-Public Use
  Company Number: CH-ASTRAZENECA-2011SE16977

PATIENT
  Age: 56 Year
  Sex: Female

DRUGS (6)
  1. NEXIUM [Suspect]
     Dosage: 1 DF
     Route: 042
     Dates: start: 20110225, end: 20110225
  2. DEROXAT [Interacting]
     Route: 048
  3. ELTROXIN [Concomitant]
  4. ROCALTROL [Concomitant]
  5. LITHIOFOR [Concomitant]
  6. METHYLENE BLUE [Interacting]
     Dosage: 1 DF
     Dates: start: 20110225, end: 20110225

REACTIONS (11)
  - CONFUSIONAL STATE [None]
  - URINARY INCONTINENCE [None]
  - STEREOTYPY [None]
  - DRUG INTERACTION [None]
  - DISINHIBITION [None]
  - DYSKINESIA [None]
  - FEAR OF DEATH [None]
  - ANXIETY [None]
  - MUTISM [None]
  - FAECAL INCONTINENCE [None]
  - AGITATION [None]
